FAERS Safety Report 24066079 (Version 1)
Quarter: 2024Q3

REPORT INFORMATION
  Report Type: Spontaneous
  Country: IT (occurrence: IT)
  Receive Date: 20240709
  Receipt Date: 20240709
  Transmission Date: 20241016
  Serious: Yes (Other)
  Sender: ELI LILLY AND CO
  Company Number: None

PATIENT
  Age: 28 Year
  Sex: Female
  Weight: 62 kg

DRUGS (3)
  1. STRATTERA [Suspect]
     Active Substance: ATOMOXETINE HYDROCHLORIDE
     Indication: Attention deficit hyperactivity disorder
     Dosage: 40 MG, DAILY (FIRST WEEK)
     Route: 048
     Dates: start: 20240404
  2. STRATTERA [Suspect]
     Active Substance: ATOMOXETINE HYDROCHLORIDE
     Dosage: 80 MG, DAILY (FOLLOWING WEEK)
     Route: 048
     Dates: end: 20240510
  3. TRAZODONE HYDROCHLORIDE [Concomitant]
     Active Substance: TRAZODONE HYDROCHLORIDE
     Indication: Mixed anxiety and depressive disorder
     Dosage: 40 MG, DAILY
     Route: 048
     Dates: start: 20230731

REACTIONS (3)
  - Sensory level abnormal [Recovered/Resolved]
  - Hypersexuality [Recovered/Resolved]
  - Affect lability [Recovered/Resolved]

NARRATIVE: CASE EVENT DATE: 20240404
